FAERS Safety Report 7325024 (Version 11)
Quarter: 2014Q1

REPORT INFORMATION
  Report Type: Spontaneous
  Country: US (occurrence: US)
  Receive Date: 20100319
  Receipt Date: 20140207
  Transmission Date: 20141002
  Serious: Yes (Hospitalization, Other)
  Sender: FDA-Public Use
  Company Number: US-BIOGENIDEC-2010BI008848

PATIENT
  Age: 61 Year
  Sex: Female

DRUGS (2)
  1. AVONEX [Suspect]
     Indication: MULTIPLE SCLEROSIS
     Route: 030
     Dates: start: 20081118
  2. AVONEX [Suspect]
     Indication: MULTIPLE SCLEROSIS
     Route: 030
     Dates: start: 20080118

REACTIONS (6)
  - Throat cancer [Recovered/Resolved]
  - Tongue neoplasm malignant stage unspecified [Recovered/Resolved]
  - Postoperative wound infection [Recovered/Resolved]
  - Head and neck cancer [Unknown]
  - Back disorder [Not Recovered/Not Resolved]
  - Rash [Unknown]
